FAERS Safety Report 10146432 (Version 1)
Quarter: 2014Q2

REPORT INFORMATION
  Report Type: Spontaneous
  Country: US (occurrence: US)
  Receive Date: 20140501
  Receipt Date: 20140501
  Transmission Date: 20141212
  Serious: Yes (Hospitalization, Other)
  Sender: FDA-Public Use
  Company Number: US-PFIZER INC-2014118816

PATIENT
  Age: 64 Year
  Sex: Male
  Weight: 106.57 kg

DRUGS (1)
  1. GENOTROPIN MQ [Suspect]
     Dosage: 6 MG, DAILY
     Dates: start: 2006

REACTIONS (3)
  - Tonsillar disorder [Unknown]
  - Myocardial infarction [Unknown]
  - Pharyngeal haemorrhage [Unknown]
